FAERS Safety Report 4461751-6 (Version None)
Quarter: 2004Q3

REPORT INFORMATION
  Report Type: 
  Country: None (occurrence: None)
  Receive Date: 20040924
  Receipt Date: 20040910
  Transmission Date: 20050211
  Serious: Yes (Other)
  Sender: FDA-Public Use
  Company Number: 2004S1000100

PATIENT
  Sex: Male

DRUGS (3)
  1. ACITRETIN (ACITRETIN) (25 MG) [Suspect]
     Indication: PSORIASIS
     Dosage: 25 MG; BID; ORAL
     Route: 048
     Dates: start: 19940101
  2. SIMVASTATIN [Concomitant]
  3. CELECOXIB [Concomitant]

REACTIONS (3)
  - EYE DISORDER [None]
  - HAEMATOMA [None]
  - HYPERTENSION [None]
